FAERS Safety Report 24570343 (Version 3)
Quarter: 2024Q4

REPORT INFORMATION
  Report Type: Spontaneous
  Country: JP (occurrence: JP)
  Receive Date: 20241031
  Receipt Date: 20241206
  Transmission Date: 20250114
  Serious: Yes (Hospitalization, Other)
  Sender: ELI LILLY AND COMPANY
  Company Number: JP-ELI_LILLY_AND_COMPANY-JP202410018293

PATIENT
  Age: 72 Year
  Sex: Male

DRUGS (6)
  1. RAMUCIRUMAB [Suspect]
     Active Substance: RAMUCIRUMAB
     Indication: Lung carcinoma cell type unspecified recurrent
     Dosage: 500 DOSAGE FORM, OTHER
     Route: 041
     Dates: start: 20210707, end: 20220719
  2. TARCEVA [Suspect]
     Active Substance: ERLOTINIB HYDROCHLORIDE
     Indication: Lung carcinoma cell type unspecified recurrent
     Route: 065
  3. TENORMIN [Concomitant]
     Active Substance: ATENOLOL
     Dosage: 25 MG, DAILY
     Route: 048
  4. MICARDIS [Concomitant]
     Active Substance: TELMISARTAN
     Dosage: 40 MG, DAILY
     Route: 048
  5. AMLODIPINE [Concomitant]
     Active Substance: AMLODIPINE BESYLATE
     Dosage: 10 MG, DAILY
     Route: 048
  6. INDAPAMIDE [Concomitant]
     Active Substance: INDAPAMIDE
     Dosage: 1 MG, DAILY
     Route: 048

REACTIONS (5)
  - Glomerulonephritis proliferative [Recovered/Resolved]
  - Atheroembolism [Unknown]
  - Thrombotic microangiopathy [Unknown]
  - Ascites [Recovered/Resolved]
  - Rash [Unknown]

NARRATIVE: CASE EVENT DATE: 20220913
